FAERS Safety Report 9355209 (Version 1)
Quarter: 2013Q2

REPORT INFORMATION
  Report Type: Report from Study
  Country: BR (occurrence: BR)
  Receive Date: 20130619
  Receipt Date: 20130619
  Transmission Date: 20140414
  Serious: Yes (Hospitalization)
  Sender: FDA-Public Use
  Company Number: PHHY2013BR061811

PATIENT
  Sex: Male

DRUGS (2)
  1. EXELON [Suspect]
     Dosage: UNK UKN, UNK
  2. EXELON PATCH [Suspect]
     Dosage: 4.6 MG (9 MG/5 CM2)
     Route: 062

REACTIONS (2)
  - Dementia Alzheimer^s type [Recovering/Resolving]
  - Abnormal behaviour [Unknown]
